FAERS Safety Report 23492033 (Version 1)
Quarter: 2024Q1

REPORT INFORMATION
  Report Type: Spontaneous
  Country: US (occurrence: None)
  Receive Date: 20240207
  Receipt Date: 20240207
  Transmission Date: 20240409
  Serious: No
  Sender: FDA-Public Use
  Company Number: US-ROCHE-3289868

PATIENT
  Sex: Female

DRUGS (16)
  1. XOLAIR [Suspect]
     Active Substance: OMALIZUMAB
     Indication: Asthma
     Dosage: VIAL, EVERY THREE TO FOUR WEEK
     Route: 058
     Dates: start: 20131226
  2. XOLAIR [Suspect]
     Active Substance: OMALIZUMAB
     Dosage: VIAL
     Route: 058
     Dates: start: 20150401
  3. XOLAIR [Suspect]
     Active Substance: OMALIZUMAB
     Route: 058
     Dates: start: 20230321
  4. LEVETIRACETAM [Concomitant]
     Active Substance: LEVETIRACETAM
  5. LATANOPROST [Concomitant]
     Active Substance: LATANOPROST
  6. FLUTICASONE PROPIONATE [Concomitant]
     Active Substance: FLUTICASONE PROPIONATE
  7. ESTRADIOL [Concomitant]
     Active Substance: ESTRADIOL
  8. HYDROXYZINE HYDROCHLORIDE [Concomitant]
     Active Substance: HYDROXYZINE HYDROCHLORIDE
  9. MONTELUKAST SODIUM [Concomitant]
     Active Substance: MONTELUKAST SODIUM
  10. CITALOPRAM [Concomitant]
     Active Substance: CITALOPRAM HYDROBROMIDE
  11. DEXILANT [Concomitant]
     Active Substance: DEXLANSOPRAZOLE
  12. VALACYCLOVIR HYDROCHLORIDE [Concomitant]
     Active Substance: VALACYCLOVIR HYDROCHLORIDE
  13. DULERA [Concomitant]
     Active Substance: FORMOTEROL FUMARATE DIHYDRATE\MOMETASONE FUROATE
  14. MONTELUKAST [Concomitant]
     Active Substance: MONTELUKAST SODIUM
     Indication: Asthma
     Dosage: AT BEDTIME
  15. ALBUTEROL [Concomitant]
     Active Substance: ALBUTEROL
     Indication: Asthma
     Dosage: NEBULIZER
  16. BREO ELLIPTA [Concomitant]
     Active Substance: FLUTICASONE FUROATE\VILANTEROL TRIFENATATE
     Indication: Asthma
     Dosage: INHALER, 2 PUFFS

REACTIONS (2)
  - Off label use [Unknown]
  - No adverse event [Unknown]
